FAERS Safety Report 9611812 (Version 1)
Quarter: 2013Q4

REPORT INFORMATION
  Report Type: Spontaneous
  Country: US (occurrence: None)
  Receive Date: 20131008
  Receipt Date: 20131008
  Transmission Date: 20140711
  Serious: Yes (Other)
  Sender: FDA-Public Use
  Company Number: 2013035233

PATIENT
  Sex: Male
  Weight: 20.41 kg

DRUGS (10)
  1. PRIVIGEN (IMMUNE GLOBULIN INTRAVENOUS (HUMAN) 10% LIQUID) [Suspect]
     Indication: CONGENITAL HYPOGAMMAGLOBULINAEMIA
     Dosage: (12 G 1X/28 DAYS INTRAVENOUS (NOT OTHERWISE SPECIFIED)), (12 G 1X/28 DAYS INTRAVENOUS (NOT OTHERWISE SPECIFIED)), (14 G 1X/28 DAYS INTRAVENOUS (NOT OTHERWISE SPECIFIED)), (14 G 1X/28 DAYS INTRAVENOUS (NOT OTHERWISE SPECIFIED))
     Route: 042
     Dates: start: 20130329, end: 20130401
  2. IBUPROFEN (IBUPROFEN) [Suspect]
     Dosage: (200 MG TID)
     Dates: start: 20130401, end: 20130401
  3. DIPHENHYDRAMINE (DIPHENHYDRAMINE) [Concomitant]
  4. LIDOCAINE/PRILOCAINE (EMLA /00675501/) [Concomitant]
  5. NORMAL SALINE (SODIUM CHLORIDE) [Concomitant]
  6. SODIUM CHLORIDE [Concomitant]
  7. EPI-PEN (EPINEPHRINE) [Concomitant]
  8. NASONEX (MOMETASONE FUROATE) [Concomitant]
  9. CHILD ZYRTEC (CETIRIZINE HYDROCHLORIDE) [Concomitant]
  10. IBUPROFEN (IBUPROFEN) [Concomitant]

REACTIONS (4)
  - Headache [None]
  - Pyrexia [None]
  - Nausea [None]
  - Neck pain [None]
